FAERS Safety Report 9099849 (Version 1)
Quarter: 2013Q1

REPORT INFORMATION
  Report Type: Report from Study
  Country: US (occurrence: US)
  Receive Date: 20130214
  Receipt Date: 20130214
  Transmission Date: 20140127
  Serious: No
  Sender: FDA-Public Use
  Company Number: US-VERTEX PHARMACEUTICALS INC.-2013-001991

PATIENT
  Sex: Female
  Weight: 68 kg

DRUGS (5)
  1. VX-950 (TELAPREVIR) [Suspect]
     Indication: HEPATITIS C
     Dosage: 750 MG, TID
     Route: 048
     Dates: end: 20130209
  2. RIBAPAK [Suspect]
     Indication: HEPATITIS C
     Dosage: 600 UNK, QD
     Dates: end: 20130209
  3. PEGASYS [Suspect]
     Indication: HEPATITIS C
     Dosage: 180 ?G, UNK
     Dates: end: 20130209
  4. MULTIVITAMIN [Concomitant]
  5. PAXIL [Concomitant]
     Dosage: 10 MG, UNK

REACTIONS (2)
  - Breast discolouration [Unknown]
  - Rash generalised [Unknown]
